FAERS Safety Report 6136712-1 (Version None)
Quarter: 2009Q1

REPORT INFORMATION
  Report Type: 
  Country: None (occurrence: None)
  Receive Date: 20090330
  Receipt Date: 20090323
  Transmission Date: 20090719
  Serious: Yes (Other)
  Sender: FDA-Public Use
  Company Number: PHEH2009US02906

PATIENT
  Age: 59 Year
  Sex: Female

DRUGS (4)
  1. TRILEPTAL [Suspect]
     Indication: CONVULSION
     Dosage: 300 MG, QD
     Route: 048
     Dates: end: 20090319
  2. BUMEX [Suspect]
     Indication: HYPERTENSION
     Dosage: UNK, 2-3 TIMES PER WEEK
     Dates: end: 20090313
  3. VERAPAMIL [Concomitant]
     Dosage: UNK
  4. ZOLPIDEM [Concomitant]
     Dosage: 10 MG, TWICE WEEKLY

REACTIONS (13)
  - ALANINE AMINOTRANSFERASE INCREASED [None]
  - ANOREXIA [None]
  - ASPARTATE AMINOTRANSFERASE INCREASED [None]
  - ASTHENIA [None]
  - BILIRUBIN URINE [None]
  - BLOOD ALKALINE PHOSPHATASE INCREASED [None]
  - BLOOD BILIRUBIN INCREASED [None]
  - HEPATITIS A [None]
  - LIVER FUNCTION TEST ABNORMAL [None]
  - LYMPHOCYTE COUNT DECREASED [None]
  - NEUTROPHIL COUNT INCREASED [None]
  - URINARY TRACT INFECTION [None]
  - URINE ABNORMALITY [None]
